FAERS Safety Report 14348430 (Version 1)
Quarter: 2018Q1

REPORT INFORMATION
  Report Type: Report from Study
  Country: US (occurrence: US)
  Receive Date: 20180103
  Receipt Date: 20180103
  Transmission Date: 20180509
  Serious: Yes (Death)
  Sender: FDA-Public Use
  Company Number: PHEH2018US000444

PATIENT
  Age: 79 Year

DRUGS (3)
  1. AFINITOR [Suspect]
     Active Substance: EVEROLIMUS
     Indication: SECOND PRIMARY MALIGNANCY
     Dosage: 7.5 MG, QD
     Route: 048
  2. AFINITOR [Suspect]
     Active Substance: EVEROLIMUS
     Indication: NEOPLASM
  3. AFINITOR [Suspect]
     Active Substance: EVEROLIMUS
     Indication: BONE CANCER

REACTIONS (2)
  - Death [Fatal]
  - Product use in unapproved indication [Unknown]

NARRATIVE: CASE EVENT DATE: 201707
